FAERS Safety Report 21710049 (Version 1)
Quarter: 2022Q4

REPORT INFORMATION
  Report Type: Spontaneous
  Country: US (occurrence: US)
  Receive Date: 20221211
  Receipt Date: 20221211
  Transmission Date: 20230113
  Serious: No
  Sender: FDA-Public Use
  Company Number: US-ELI_LILLY_AND_COMPANY-US202211011518

PATIENT
  Age: 37 Year
  Sex: Female

DRUGS (1)
  1. MOUNJARO [Suspect]
     Active Substance: TIRZEPATIDE
     Indication: Obesity
     Dosage: 2.5 MG, WEEKLY (1/W)
     Route: 058
     Dates: start: 202209

REACTIONS (4)
  - Inappropriate schedule of product administration [Unknown]
  - Off label use [Unknown]
  - Hypersensitivity [Recovered/Resolved]
  - Injection site rash [Recovered/Resolved]
